FAERS Safety Report 9167275 (Version 5)
Quarter: 2013Q3

REPORT INFORMATION
  Report Type: Report from Study
  Country: AR (occurrence: AR)
  Receive Date: 20130318
  Receipt Date: 20130723
  Transmission Date: 20140515
  Serious: Yes (Hospitalization)
  Sender: FDA-Public Use
  Company Number: AR-AMGEN-ARGCT2013018269

PATIENT
  Age: 56 Year
  Sex: Female
  Weight: 74.2 kg

DRUGS (5)
  1. ETANERCEPT [Suspect]
     Indication: RHEUMATOID ARTHRITIS
     Dosage: 50 MG, QWK
     Route: 058
     Dates: start: 20121107, end: 20130224
  2. METHOTREXATE [Concomitant]
     Dosage: 15 MG, WEEKLY
     Route: 030
     Dates: start: 2007
  3. DICLOFENAC [Concomitant]
     Dosage: 75 MG, 2X/DAY(PILL)
     Route: 048
     Dates: start: 2007
  4. BETAMETHASONE [Concomitant]
     Dosage: 0.6 MG, 2X/DAY (PILL)
     Route: 048
     Dates: start: 2007
  5. CALCIUM CITRATE [Concomitant]
     Dosage: 1 DF, UNK
     Route: 048
     Dates: start: 20111118

REACTIONS (1)
  - Abdominal pain [Recovered/Resolved with Sequelae]
